FAERS Safety Report 4877343-0 (Version None)
Quarter: 2006Q1

REPORT INFORMATION
  Report Type: 
  Country: None (occurrence: None)
  Receive Date: 20060106
  Receipt Date: 20051222
  Transmission Date: 20060701
  Serious: Yes (Hospitalization)
  Sender: FDA-Public Use
  Company Number: 2005-02117

PATIENT
  Age: 28 Year
  Sex: Male
  Weight: 66.5 kg

DRUGS (7)
  1. VELCADE [Suspect]
     Indication: MULTIPLE MYELOMA
     Dosage: 2.30 MG, 2/WEEK, INTRAVENOUS
     Route: 042
     Dates: start: 20050916
  2. DOXIL [Suspect]
     Indication: MULTIPLE MYELOMA
     Dosage: 52.00 MG, INTRAVENOUS
     Route: 042
     Dates: start: 20050916
  3. OXYCODONE (OXYCODONE) [Concomitant]
  4. ACETAMINOPHEN [Concomitant]
  5. CALCIUM CARBONATE (CALCIUM CARBONATE) [Concomitant]
  6. ACYCLOVIR [Concomitant]
  7. ZOLEDRONIC ACID (ZOLEDRONIC ACID) [Concomitant]

REACTIONS (4)
  - HYPOTENSION [None]
  - ORCHITIS [None]
  - PLATELET COUNT DECREASED [None]
  - PYREXIA [None]
